FAERS Safety Report 17930998 (Version 2)
Quarter: 2020Q2

REPORT INFORMATION
  Report Type: Report from Study
  Country: US (occurrence: US)
  Receive Date: 20200623
  Receipt Date: 20200630
  Transmission Date: 20200714
  Serious: Yes (Other)
  Sender: FDA-Public Use
  Company Number: US-MYLANLABS-2020M1054477

PATIENT
  Age: 49 Year
  Sex: Female
  Weight: 79.37 kg

DRUGS (1)
  1. GLATIRAMER ACETATE INJECTION [Suspect]
     Active Substance: GLATIRAMER ACETATE
     Indication: RELAPSING-REMITTING MULTIPLE SCLEROSIS
     Dosage: 20 MILLIGRAM, (DAILY)
     Route: 058
     Dates: start: 20200528

REACTIONS (12)
  - Paraesthesia [Unknown]
  - Injection site pain [Recovered/Resolved]
  - Product use issue [Unknown]
  - Weight increased [Unknown]
  - Multiple sclerosis relapse [Unknown]
  - Muscle spasms [Unknown]
  - Hypoaesthesia [Unknown]
  - Pain [Unknown]
  - Swelling [Unknown]
  - Injection site erythema [Unknown]
  - Anxiety [Unknown]
  - Neuralgia [Unknown]

NARRATIVE: CASE EVENT DATE: 20200529
